FAERS Safety Report 9477979 (Version 1)
Quarter: 2013Q3

REPORT INFORMATION
  Report Type: Spontaneous
  Country: US (occurrence: None)
  Receive Date: 20130826
  Receipt Date: 20130826
  Transmission Date: 20140515
  Serious: Yes (Hospitalization)
  Sender: FDA-Public Use
  Company Number: None

PATIENT
  Age: 76 Year
  Sex: Female
  Weight: 61.24 kg

DRUGS (1)
  1. SUTENT [Suspect]
     Indication: RENAL CANCER
     Route: 048
     Dates: start: 20130704, end: 20130711

REACTIONS (5)
  - Oesophageal ulcer [None]
  - Oesophagitis [None]
  - Oesophageal haemorrhage [None]
  - Aphagia [None]
  - Dehydration [None]
